FAERS Safety Report 7386907-4 (Version None)
Quarter: 2011Q1

REPORT INFORMATION
  Report Type: 
  Country: None (occurrence: None)
  Receive Date: 20110331
  Receipt Date: 20110322
  Transmission Date: 20110831
  Serious: Yes (Other)
  Sender: FDA-Public Use
  Company Number: US-ASTRAZENECA-2011SE16062

PATIENT
  Age: 52 Year
  Sex: Female

DRUGS (2)
  1. FASLODEX [Suspect]
     Indication: METASTASES TO LUNG
     Route: 030
     Dates: start: 20101001
  2. FASLODEX [Suspect]
     Indication: BREAST CANCER METASTATIC
     Route: 030
     Dates: start: 20101001

REACTIONS (2)
  - NEOPLASM [None]
  - DRUG INEFFECTIVE [None]
